FAERS Safety Report 7373721-9 (Version None)
Quarter: 2011Q1

REPORT INFORMATION
  Report Type: 
  Country: None (occurrence: None)
  Receive Date: 20110325
  Receipt Date: 20100817
  Transmission Date: 20110831
  Serious: No
  Sender: FDA-Public Use
  Company Number: US-MYLANLABS-2010S1015095

PATIENT
  Sex: Female

DRUGS (1)
  1. PROPRANOLOL [Suspect]

REACTIONS (3)
  - FATIGUE [None]
  - ABDOMINAL DISCOMFORT [None]
  - NAUSEA [None]
